FAERS Safety Report 4646089-6 (Version None)
Quarter: 2005Q2

REPORT INFORMATION
  Report Type: 
  Country: None (occurrence: None)
  Receive Date: 20050427
  Receipt Date: 20040809
  Transmission Date: 20051028
  Serious: No
  Sender: FDA-Public Use
  Company Number: US-GLAXOSMITHKLINE-A0521552A

PATIENT
  Age: 50 Year
  Sex: Female
  Weight: 69.5 kg

DRUGS (2)
  1. ZOFRAN [Suspect]
     Indication: PROPHYLAXIS OF NAUSEA AND VOMITING
     Dosage: 100MG SEE DOSAGE TEXT
     Route: 042
     Dates: start: 20040809, end: 20040809
  2. ZOFRAN [Suspect]
     Indication: NAUSEA
     Route: 048

REACTIONS (4)
  - DRUG INEFFECTIVE [None]
  - MEDICATION ERROR [None]
  - NO ADVERSE EFFECT [None]
  - OVERDOSE [None]
